FAERS Safety Report 21057968 (Version 1)
Quarter: 2022Q3

REPORT INFORMATION
  Report Type: Spontaneous
  Country: US (occurrence: None)
  Receive Date: 20220708
  Receipt Date: 20220708
  Transmission Date: 20221027
  Serious: Yes (Other)
  Sender: FDA-Public Use
  Company Number: None

PATIENT
  Age: 70 Year
  Sex: Female
  Weight: 81 kg

DRUGS (16)
  1. MYRBETRIQ [Suspect]
     Active Substance: MIRABEGRON
     Indication: Hypertonic bladder
     Dosage: OTHER QUANTITY : 1 TABLET(S);?
     Route: 048
     Dates: start: 20220614, end: 20220623
  2. METHYLPHENIDATE [Concomitant]
     Active Substance: METHYLPHENIDATE
  3. Magnesium dermal spray [Concomitant]
  4. MAGNESIUM [Concomitant]
     Active Substance: MAGNESIUM
  5. ZINC [Concomitant]
     Active Substance: ZINC
  6. VITAMIN K [Concomitant]
     Active Substance: PHYTONADIONE
  7. CALCIUM [Concomitant]
     Active Substance: CALCIUM
  8. ashwaghanda [Concomitant]
  9. astralagus [Concomitant]
  10. Nurafol [Concomitant]
  11. 5HTP [Concomitant]
  12. d# [Concomitant]
  13. VITAMIN C [Concomitant]
     Active Substance: ASCORBIC ACID
  14. OMEGA 3 [Concomitant]
     Active Substance: CAPSAICIN
  15. COENZYME Q10 [Concomitant]
     Active Substance: DIETARY SUPPLEMENT\UBIDECARENONE
  16. HERBALS\TURMERIC [Concomitant]
     Active Substance: HERBALS\TURMERIC

REACTIONS (5)
  - Constipation [None]
  - Abdominal pain [None]
  - Anger [None]
  - Depression [None]
  - Hallucination, visual [None]

NARRATIVE: CASE EVENT DATE: 20220614
